FAERS Safety Report 14300482 (Version 1)
Quarter: 2017Q4

REPORT INFORMATION
  Report Type: Spontaneous
  Country: FR (occurrence: FR)
  Receive Date: 20171219
  Receipt Date: 20171219
  Transmission Date: 20180321
  Serious: Yes (Hospitalization)
  Sender: FDA-Public Use
  Company Number: FR-ROCHE-2037996

PATIENT
  Age: 18 Year
  Sex: Female

DRUGS (2)
  1. TIAPRIDE [Suspect]
     Active Substance: TIAPRIDE
     Indication: SUICIDE ATTEMPT
     Dosage: 25 TABLETS OF 100MG EACH
     Route: 048
  2. DIAZEPAM. [Suspect]
     Active Substance: DIAZEPAM
     Indication: SUICIDE ATTEMPT
     Route: 048

REACTIONS (5)
  - Overdose [Unknown]
  - Somnolence [Recovered/Resolved]
  - Confusional state [Recovered/Resolved]
  - Cardiotoxicity [Recovered/Resolved]
  - Suicide attempt [Unknown]
